FAERS Safety Report 26002363 (Version 1)
Quarter: 2025Q4

REPORT INFORMATION
  Report Type: Spontaneous
  Country: US (occurrence: US)
  Receive Date: 20251105
  Receipt Date: 20251105
  Transmission Date: 20260117
  Serious: No
  Sender: APOTEX
  Company Number: US-APOTEX-2025AP031803

PATIENT
  Sex: Female

DRUGS (2)
  1. IMIQUIMOD [Suspect]
     Active Substance: IMIQUIMOD
     Indication: Papilloma viral infection
     Dosage: UNK UNK, T.I.W
     Route: 061
  2. IMIQUIMOD [Suspect]
     Active Substance: IMIQUIMOD
     Indication: Vulvar dysplasia

REACTIONS (2)
  - Skin irritation [Unknown]
  - Skin ulcer [Unknown]
